FAERS Safety Report 18354154 (Version 1)
Quarter: 2020Q4

REPORT INFORMATION
  Report Type: Spontaneous
  Country: US (occurrence: US)
  Receive Date: 20201007
  Receipt Date: 20201007
  Transmission Date: 20210114
  Serious: No
  Sender: FDA-Public Use
  Company Number: US-SA-2020SA271055

PATIENT

DRUGS (1)
  1. LANTUS SOLOSTAR [Suspect]
     Active Substance: INSULIN GLARGINE
     Indication: TYPE 2 DIABETES MELLITUS
     Dosage: 16 IU, QD (BEFORE BEDTIME)
     Route: 065

REACTIONS (4)
  - Wrong technique in device usage process [Unknown]
  - Dyspnoea [Unknown]
  - Blood glucose increased [Unknown]
  - Visual impairment [Unknown]
